FAERS Safety Report 7222893-5 (Version None)
Quarter: 2011Q1

REPORT INFORMATION
  Report Type: 
  Country: None (occurrence: None)
  Receive Date: 20110103
  Receipt Date: 20110103
  Transmission Date: 20110831
  Serious: Yes (Hospitalization)
  Sender: FDA-Public Use
  Company Number: None

PATIENT
  Age: 68 Year
  Sex: Female
  Weight: 73 kg

DRUGS (10)
  1. DYAZIDE [Concomitant]
  2. ALPRAZOLAM [Concomitant]
  3. GLIPIZIDE [Concomitant]
  4. COUMADIN [Suspect]
     Indication: ATRIAL FIBRILLATION
     Dosage: 5MG / 7.5MG MWF/T THSS PO CHRONIC
     Route: 048
  5. BETAPACE [Concomitant]
  6. ASPIRIN [Suspect]
     Indication: ATRIAL FIBRILLATION
     Dosage: 81MG DAILY PO CHRONIC
     Route: 048
  7. MECLIZINE [Concomitant]
  8. DIOVAN [Concomitant]
  9. ACTOS [Concomitant]
  10. PREDNISONE [Concomitant]

REACTIONS (4)
  - ARTERIOVENOUS MALFORMATION [None]
  - HAEMORRHAGE [None]
  - INTERNATIONAL NORMALISED RATIO INCREASED [None]
  - COAGULOPATHY [None]
